FAERS Safety Report 13364041 (Version 1)
Quarter: 2017Q1

REPORT INFORMATION
  Report Type: Spontaneous
  Country: CO (occurrence: CO)
  Receive Date: 20170323
  Receipt Date: 20170323
  Transmission Date: 20170429
  Serious: Yes (Hospitalization)
  Sender: FDA-Public Use
  Company Number: CO-B.I. PHARMACEUTICALS,INC./RIDGEFIELD-2017-BI-015696

PATIENT
  Age: 76 Year

DRUGS (2)
  1. PRAXBIND [Concomitant]
     Active Substance: IDARUCIZUMAB
     Indication: ABDOMINAL OPERATION
     Route: 065
  2. PRADAXA [Suspect]
     Active Substance: DABIGATRAN ETEXILATE MESYLATE
     Indication: ATRIAL FIBRILLATION
     Route: 065
     Dates: start: 2012

REACTIONS (3)
  - Perforation [Recovered/Resolved]
  - Intestinal obstruction [Recovered/Resolved]
  - Necrosis [Recovered/Resolved]
